FAERS Safety Report 20430140 (Version 1)
Quarter: 2022Q1

REPORT INFORMATION
  Report Type: Report from Study
  Country: FR (occurrence: FR)
  Receive Date: 20220204
  Receipt Date: 20220204
  Transmission Date: 20220424
  Serious: Yes (Hospitalization)
  Sender: FDA-Public Use
  Company Number: FR-SERVIER-S20003924

PATIENT

DRUGS (10)
  1. ONCASPAR [Suspect]
     Active Substance: PEGASPARGASE
     Indication: Acute lymphocytic leukaemia
     Dosage: 4400 IU, ON D15,
     Route: 042
     Dates: start: 20190607, end: 20190607
  2. ONCASPAR [Suspect]
     Active Substance: PEGASPARGASE
     Dosage: 4400 IU, ON D62 DELAYED
     Route: 042
     Dates: start: 20190726, end: 20190726
  3. VINCRISTINE SULFATE [Suspect]
     Active Substance: VINCRISTINE SULFATE
     Indication: Acute lymphocytic leukaemia
     Dosage: 2MG, ON D15, , D22, D62, D69
     Route: 042
     Dates: start: 20190607
  4. VINCRISTINE SULFATE [Suspect]
     Active Substance: VINCRISTINE SULFATE
     Dosage: 2MG, ON D15, D22, D62, D69
     Route: 042
     Dates: end: 20190730
  5. CYCLOPHOSPHAMIDE [Suspect]
     Active Substance: CYCLOPHOSPHAMIDE
     Indication: Acute lymphocytic leukaemia
     Dosage: 1800 MG
     Route: 042
     Dates: start: 20190524, end: 20190621
  6. MERCAPTOPURINE [Suspect]
     Active Substance: MERCAPTOPURINE
     Indication: Acute lymphocytic leukaemia
     Dosage: 100 MG , D1 TO D14, D29 TO D33
     Route: 048
     Dates: start: 20190524, end: 20190722
  7. CYTARABINE [Suspect]
     Active Substance: CYTARABINE
     Indication: Acute lymphocytic leukaemia
     Dosage: 30 MG, ON D3,D31
     Route: 037
     Dates: start: 20190526, end: 20190623
  8. CYTARABINE [Suspect]
     Active Substance: CYTARABINE
     Dosage: 130 MG,  D3 TO D6, D10 TO D13, D31 TO D34
     Route: 042
     Dates: start: 20190526, end: 20190626
  9. METHOTREXATE [Suspect]
     Active Substance: METHOTREXATE
     Indication: Acute lymphocytic leukaemia
     Dosage: 15 MG, , ON D3, D31
     Route: 037
     Dates: start: 20190526, end: 20190623
  10. HYDROCORTISONE [Suspect]
     Active Substance: HYDROCORTISONE
     Indication: Acute lymphocytic leukaemia
     Dosage: 15 MG, ON D3, D31
     Route: 037
     Dates: start: 20190526, end: 20190623

REACTIONS (2)
  - Cholestasis [Recovered/Resolved]
  - Febrile neutropenia [Recovered/Resolved]

NARRATIVE: CASE EVENT DATE: 20190704
